FAERS Safety Report 8904333 (Version 3)
Quarter: 2013Q1

REPORT INFORMATION
  Report Type: Spontaneous
  Country: US (occurrence: US)
  Receive Date: 20121113
  Receipt Date: 20130116
  Transmission Date: 20140127
  Serious: No
  Sender: FDA-Public Use
  Company Number: US-009507513-1210USA013061

PATIENT
  Age: 57 Year
  Sex: Female

DRUGS (12)
  1. PEGINTRON [Suspect]
     Indication: HEPATITIS C
     Dosage: REDIPEN
     Dates: start: 20120928
  2. PEGINTRON [Suspect]
     Dosage: REDIPEN
     Dates: start: 20031003, end: 20040903
  3. PEGINTRON [Suspect]
     Dosage: REDIPEN
     Dates: start: 20111125, end: 20120518
  4. PEGINTRON [Suspect]
     Dosage: REDIPEN
     Dates: start: 20120925
  5. PEGINTRON [Suspect]
     Dosage: REDIPEN
     Dates: start: 20121019
  6. VICTRELIS [Suspect]
     Indication: HEPATITIS C
     Dosage: UNK
     Route: 048
     Dates: start: 20111224, end: 20120518
  7. REBETOL [Suspect]
     Indication: HEPATITIS C
     Dosage: UNK
     Route: 048
     Dates: start: 20120925
  8. REBETOL [Suspect]
     Dosage: UNK
     Route: 048
     Dates: start: 20031003, end: 20040903
  9. REBETOL [Suspect]
     Dosage: UNK
     Route: 048
     Dates: start: 20111125, end: 20120518
  10. REBETOL [Suspect]
     Dosage: UNK
     Route: 048
     Dates: start: 20120928
  11. REBETOL [Suspect]
     Dosage: UNK
     Route: 048
     Dates: start: 20121019
  12. TELAPREVIR [Suspect]
     Indication: HEPATITIS C
     Dosage: UNK
     Dates: start: 20120925, end: 20121217

REACTIONS (5)
  - Arthralgia [Unknown]
  - Myalgia [Unknown]
  - Drug dose omission [Unknown]
  - No adverse event [Unknown]
  - Diarrhoea [Unknown]
